FAERS Safety Report 7550122-1 (Version None)
Quarter: 2011Q2

REPORT INFORMATION
  Report Type: 
  Country: None (occurrence: None)
  Receive Date: 20110615
  Receipt Date: 20110601
  Transmission Date: 20111010
  Serious: Yes (Hospitalization)
  Sender: FDA-Public Use
  Company Number: US-CELGENEUS-163-21880-11060281

PATIENT
  Age: 77 Year
  Sex: Male

DRUGS (12)
  1. PEPCID [Concomitant]
     Route: 065
  2. REVLIMID [Suspect]
     Indication: MULTIPLE MYELOMA
     Dosage: 25 MILLIGRAM
     Route: 048
     Dates: start: 20100310, end: 20100601
  3. ALLOPURINOL [Concomitant]
     Route: 065
  4. ISONIAZID [Concomitant]
     Route: 065
  5. ATENOLOL [Concomitant]
     Route: 065
  6. IMDUR [Concomitant]
     Route: 065
  7. PLAVIX [Concomitant]
     Route: 065
  8. DEXAMETHASONE [Suspect]
     Indication: MULTIPLE MYELOMA
     Dosage: 20 MILLIGRAM
     Route: 048
     Dates: start: 20100310, end: 20100601
  9. ASPIRIN [Concomitant]
     Route: 065
  10. PREDNISONE [Concomitant]
     Route: 065
  11. SIMVASTATIN [Concomitant]
     Route: 065
  12. SPIRIVA [Concomitant]
     Route: 055

REACTIONS (5)
  - BLADDER DILATATION [None]
  - PANCYTOPENIA [None]
  - GASTROINTESTINAL HAEMORRHAGE [None]
  - ATRIAL FIBRILLATION [None]
  - URINARY TRACT INFECTION [None]
